FAERS Safety Report 9431583 (Version 1)
Quarter: 2013Q3

REPORT INFORMATION
  Report Type: Spontaneous
  Country: US (occurrence: US)
  Receive Date: 20130731
  Receipt Date: 20130731
  Transmission Date: 20140515
  Serious: No
  Sender: FDA-Public Use
  Company Number: US-009507513-1307USA014575

PATIENT
  Sex: Female

DRUGS (1)
  1. NUVARING [Suspect]
     Dosage: 1 DF, 3 WEEKS IN AND 1 WEEK OUT
     Route: 067
     Dates: start: 201210

REACTIONS (2)
  - Device expulsion [Unknown]
  - Menstrual disorder [Unknown]
